FAERS Safety Report 8573038-0 (Version None)
Quarter: 2012Q2

REPORT INFORMATION
  Report Type: 
  Country: None (occurrence: None)
  Receive Date: 20120418
  Receipt Date: 20110103
  Transmission Date: 20120825
  Serious: Yes (Other)
  Sender: FDA-Public Use
  Company Number: PHHY2010US84517

PATIENT
  Sex: Female

DRUGS (6)
  1. FLAXSEED OIL (LINUM USITATISSIMUM SEED OIL) [Concomitant]
  2. LOVAZA [Concomitant]
  3. DIOVAN HCT [Suspect]
     Dosage: 160/12.5 MG (1 PER DAY)
  4. MOTRIN [Concomitant]
  5. TEA, GREEN (CAMELLIA SINENSIS, TEA, GREEN) [Concomitant]
  6. VITAMINS (NO INGREDIENTS/SUBSTANCES) [Concomitant]

REACTIONS (5)
  - BLOOD PRESSURE FLUCTUATION [None]
  - HEADACHE [None]
  - HYPERTENSION [None]
  - FLUID RETENTION [None]
  - DIZZINESS [None]
